FAERS Safety Report 25436774 (Version 2)
Quarter: 2025Q2

REPORT INFORMATION
  Report Type: Spontaneous
  Country: CA (occurrence: CA)
  Receive Date: 20250615
  Receipt Date: 20250624
  Transmission Date: 20250717
  Serious: Yes (Other)
  Sender: ALEXION PHARMACEUTICALS
  Company Number: CA-AstraZeneca-CH-00888653AMP

PATIENT

DRUGS (1)
  1. NEXIUM [Suspect]
     Active Substance: ESOMEPRAZOLE MAGNESIUM

REACTIONS (5)
  - Device issue [Unknown]
  - Poisoning [Unknown]
  - Counterfeit product administered [Unknown]
  - Product odour abnormal [Unknown]
  - Drug ineffective [Unknown]
